FAERS Safety Report 5349610-8 (Version None)
Quarter: 2007Q2

REPORT INFORMATION
  Report Type: 
  Country: None (occurrence: None)
  Receive Date: 20070607
  Receipt Date: 20070529
  Transmission Date: 20071010
  Serious: Yes (Hospitalization)
  Sender: FDA-Public Use
  Company Number: IT-JNJFOC-20070506380

PATIENT
  Age: 37 Year
  Sex: Male

DRUGS (3)
  1. TAVANIC [Suspect]
     Indication: PYODERMA
     Route: 048
  2. TAVANIC [Suspect]
     Indication: SKIN INFECTION
     Route: 048
  3. EFALIZUMAB [Concomitant]
     Indication: PSORIASIS
     Route: 058

REACTIONS (3)
  - DERMATITIS ATOPIC [None]
  - PHOTOSENSITIVITY REACTION [None]
  - PSORIASIS [None]
